FAERS Safety Report 5859177-3 (Version None)
Quarter: 2008Q3

REPORT INFORMATION
  Report Type: 
  Country: None (occurrence: None)
  Receive Date: 20080825
  Receipt Date: 20080806
  Transmission Date: 20090109
  Serious: Yes (Other)
  Sender: FDA-Public Use
  Company Number: 2008SP016019

PATIENT
  Age: 45 Year
  Sex: Female

DRUGS (1)
  1. DRIXINE (OXYMETAZOLINE HYDROCHLORIDE) (NASAL)) (OXYMETAZOLINE HYDROCHL [Suspect]
     Indication: NASAL CONGESTION
     Dosage: QD; NAS
     Route: 045

REACTIONS (6)
  - COUGH [None]
  - DYSPNOEA [None]
  - FOREIGN BODY TRAUMA [None]
  - NASAL DISORDER [None]
  - PHARMACEUTICAL PRODUCT COMPLAINT [None]
  - SCRATCH [None]
